FAERS Safety Report 9198347 (Version 1)
Quarter: 2013Q1

REPORT INFORMATION
  Report Type: Spontaneous
  Country: US (occurrence: None)
  Receive Date: 20130327
  Receipt Date: 20130327
  Transmission Date: 20140127
  Serious: Yes (Other)
  Sender: FDA-Public Use
  Company Number: None

PATIENT
  Sex: Female

DRUGS (1)
  1. NEUTROGENA SKINID CLEANSER [Suspect]
     Route: 061

REACTIONS (2)
  - Asthma [None]
  - Product quality issue [None]
